FAERS Safety Report 14248110 (Version 1)
Quarter: 2017Q4

REPORT INFORMATION
  Report Type: Spontaneous
  Country: US (occurrence: US)
  Receive Date: 20171204
  Receipt Date: 20171204
  Transmission Date: 20180321
  Serious: Yes (Other)
  Sender: FDA-Public Use
  Company Number: US-APOPHARMA USA, INC.-2017AP022216

PATIENT

DRUGS (4)
  1. CAMPATH [Suspect]
     Active Substance: ALEMTUZUMAB
     Indication: STEM CELL TRANSPLANT
     Dosage: 20 MG, QD
     Route: 042
  2. TACROLIMUS. [Concomitant]
     Active Substance: TACROLIMUS
     Indication: IMMUNOSUPPRESSION
     Dosage: UNK, UNKNOWN
     Route: 065
  3. ALKERAN [Suspect]
     Active Substance: MELPHALAN
     Indication: STEM CELL TRANSPLANT
     Dosage: 140 MG/M2, SINGLE
     Route: 065
  4. FLUDARABINE [Suspect]
     Active Substance: FLUDARABINE PHOSPHATE
     Indication: STEM CELL TRANSPLANT
     Dosage: 30 MG/M2, QD
     Route: 042

REACTIONS (1)
  - Cytomegalovirus viraemia [Unknown]
